FAERS Safety Report 19583592 (Version 3)
Quarter: 2021Q3

REPORT INFORMATION
  Report Type: Spontaneous
  Country: PT (occurrence: PT)
  Receive Date: 20210720
  Receipt Date: 20210908
  Transmission Date: 20211014
  Serious: Yes (Hospitalization, Congenital Anomaly, Other)
  Sender: FDA-Public Use
  Company Number: PT-GLAXOSMITHKLINE-PTCH2021046032

PATIENT
  Sex: Male

DRUGS (4)
  1. PARACETAMOL [Suspect]
     Active Substance: ACETAMINOPHEN
     Indication: BACK PAIN
  2. PARACETAMOL [Suspect]
     Active Substance: ACETAMINOPHEN
     Indication: FOETAL EXPOSURE DURING PREGNANCY
     Dosage: UNK(MATERNAL DOSE UNKNOWN FOR 5 DAYS)
     Route: 064
  3. DICLOFENAC [Suspect]
     Active Substance: DICLOFENAC
     Indication: FOETAL EXPOSURE DURING PREGNANCY
     Dosage: UNK(MATERNAL DOSE : SINGLE DOSE)
     Route: 064
  4. DICLOFENAC [Suspect]
     Active Substance: DICLOFENAC
     Indication: BACK PAIN

REACTIONS (9)
  - Ductus arteriosus premature closure [Recovered/Resolved]
  - Pulmonary valve disease [Recovered/Resolved]
  - Right-to-left cardiac shunt [Recovered/Resolved]
  - Cyanosis central [Unknown]
  - Ventricular hypertrophy [Recovered/Resolved]
  - Tricuspid valve incompetence [Recovered/Resolved]
  - Foetal exposure during pregnancy [Recovered/Resolved]
  - Pulmonary hypertension [Recovered/Resolved]
  - Atrial septal defect [Recovered/Resolved]
